FAERS Safety Report 9143777 (Version 1)
Quarter: 2013Q1

REPORT INFORMATION
  Report Type: Spontaneous
  Country: US (occurrence: US)
  Receive Date: 20130306
  Receipt Date: 20130306
  Transmission Date: 20140127
  Serious: Yes (Hospitalization, Other)
  Sender: FDA-Public Use
  Company Number: US-BRISTOL-MYERS SQUIBB COMPANY-17419722

PATIENT
  Age: 46 Year
  Sex: Female

DRUGS (4)
  1. YERVOY [Suspect]
     Indication: MALIGNANT MELANOMA
  2. METOPROLOL TARTRATE [Suspect]
     Indication: HYPERTENSION
     Dosage: 1DF;1 1/2 METOPROLOL 100MG TABS
  3. LOSARTAN [Suspect]
     Indication: HYPERTENSION
  4. SYNTHROID [Concomitant]
     Indication: HYPOTHYROIDISM

REACTIONS (2)
  - Dehydration [Unknown]
  - Mental disorder [Unknown]
